FAERS Safety Report 21620411 (Version 1)
Quarter: 2022Q4

REPORT INFORMATION
  Report Type: Spontaneous
  Country: US (occurrence: US)
  Receive Date: 20221121
  Receipt Date: 20221121
  Transmission Date: 20230112
  Serious: No
  Sender: FDA-Public Use
  Company Number: US-BRISTOL-MYERS SQUIBB COMPANY-2022-140777

PATIENT
  Age: 58 Year
  Sex: Female

DRUGS (1)
  1. ORENCIA [Suspect]
     Active Substance: ABATACEPT
     Indication: Product used for unknown indication
     Dosage: DOSE:125MG/ML; FREQ:1 SYRINGE ONCE A WEEK.
     Route: 058

REACTIONS (6)
  - Illness [Unknown]
  - Abdominal pain upper [Unknown]
  - Vertigo [Unknown]
  - Back pain [Unknown]
  - Abdominal discomfort [Unknown]
  - Nasopharyngitis [Unknown]
